FAERS Safety Report 4910508-8 (Version None)
Quarter: 2006Q1

REPORT INFORMATION
  Report Type: 
  Country: None (occurrence: None)
  Receive Date: 20060209
  Receipt Date: 20060131
  Transmission Date: 20060701
  Serious: Yes (Life-Threatening, Hospitalization, Other)
  Sender: FDA-Public Use
  Company Number: 2006-01-2087

PATIENT
  Age: 90 Year
  Sex: Male
  Weight: 90 kg

DRUGS (27)
  1. INTEGRILIN [Suspect]
     Dosage: SEE IMAGE, INTRAVENOUS BOLUS
     Route: 040
     Dates: start: 20051102, end: 20051102
  2. INTEGRILIN [Suspect]
     Dosage: SEE IMAGE, INTRAVENOUS BOLUS
     Route: 040
     Dates: start: 20051102, end: 20051107
  3. HEPARIN [Suspect]
     Dosage: SEE IMAGE
     Dates: start: 20051102, end: 20051107
  4. CARVEDILOL [Concomitant]
  5. LIPITOR [Concomitant]
  6. ALDACTONE [Concomitant]
  7. COUMADIN [Concomitant]
  8. LASIX [Concomitant]
  9. CENTRUM [Concomitant]
  10. ANCEF [Concomitant]
  11. FLOVENT [Concomitant]
  12. COMBIVENT [Concomitant]
  13. RANITIDINE [Concomitant]
  14. ASPIRIN [Concomitant]
  15. COLACE [Concomitant]
  16. HUMULIN R [Concomitant]
  17. CAPTOPRIL [Concomitant]
  18. TRAZODONE [Concomitant]
  19. AMIODARONE [Concomitant]
  20. METOPROLOL [Concomitant]
  21. LOXAPINE [Concomitant]
  22. SENOKOT [Concomitant]
  23. FENTANYL CITRATE [Concomitant]
  24. VERSED [Concomitant]
  25. EPINEPHRINE [Concomitant]
  26. SEPTRA DS [Concomitant]
  27. ALTACE [Concomitant]

REACTIONS (11)
  - AGITATION [None]
  - COGNITIVE DISORDER [None]
  - CONFUSION POSTOPERATIVE [None]
  - DELIRIUM [None]
  - DEPRESSED LEVEL OF CONSCIOUSNESS [None]
  - DIFFICULTY IN WALKING [None]
  - DYSPHAGIA [None]
  - HAEMOGLOBIN DECREASED [None]
  - LABILE BLOOD PRESSURE [None]
  - POST PROCEDURAL COMPLICATION [None]
  - PROCEDURAL HYPOTENSION [None]
